FAERS Safety Report 5933087-5 (Version None)
Quarter: 2008Q4

REPORT INFORMATION
  Report Type: 
  Country: None (occurrence: None)
  Receive Date: 20081028
  Receipt Date: 20081017
  Transmission Date: 20090506
  Serious: Yes (Hospitalization)
  Sender: FDA-Public Use
  Company Number: TR-JNJFOC-20081004786

PATIENT
  Age: 40 Year
  Sex: Female

DRUGS (3)
  1. REMICADE [Suspect]
     Dosage: 4 INFUSIONS ON UNKNOWN DATES
     Route: 042
  2. REMICADE [Suspect]
     Indication: ANKYLOSING SPONDYLITIS
     Dosage: 16 INFUSIONS ON UNKNOWN DATES
     Route: 042
  3. HUMIRA [Concomitant]
     Indication: ANKYLOSING SPONDYLITIS

REACTIONS (6)
  - FLUSHING [None]
  - INFUSION RELATED REACTION [None]
  - NAUSEA [None]
  - PALPITATIONS [None]
  - SUFFOCATION FEELING [None]
  - TREMOR [None]
